FAERS Safety Report 8246993-6 (Version None)
Quarter: 2012Q1

REPORT INFORMATION
  Report Type: 
  Country: None (occurrence: None)
  Receive Date: 20120330
  Receipt Date: 20120330
  Transmission Date: 20120608
  Serious: No
  Sender: FDA-Public Use
  Company Number: None

PATIENT
  Age: 55 Year
  Sex: Male
  Weight: 77.11 kg

DRUGS (1)
  1. LEVOFLOXACIN [Suspect]
     Indication: PROSTATE INFECTION
     Dosage: 500 MG
     Route: 048
     Dates: start: 20120216, end: 20120301

REACTIONS (2)
  - TENDONITIS [None]
  - GAIT DISTURBANCE [None]
